FAERS Safety Report 11326767 (Version 1)
Quarter: 2015Q3

REPORT INFORMATION
  Report Type: Spontaneous
  Country: US (occurrence: None)
  Receive Date: 20150729
  Receipt Date: 20150729
  Transmission Date: 20151125
  Serious: Yes (Hospitalization)
  Sender: FDA-Public Use
  Company Number: None

PATIENT
  Age: 58 Year
  Sex: Male

DRUGS (10)
  1. SIROLIMUS. [Suspect]
     Active Substance: SIROLIMUS
     Indication: IMMUNOSUPPRESSION
     Route: 048
     Dates: start: 20141121, end: 20141222
  2. SULFAMETHOXAZOLE-TRIMETHOPRIM [Concomitant]
     Active Substance: SULFAMETHOXAZOLE\TRIMETHOPRIM
  3. PREDNISONE. [Concomitant]
     Active Substance: PREDNISONE
  4. AMIODARONE [Concomitant]
     Active Substance: AMIODARONE
  5. URSODIAL [Concomitant]
  6. MEROPENEM. [Concomitant]
     Active Substance: MEROPENEM
  7. FLUCONAZOLE. [Concomitant]
     Active Substance: FLUCONAZOLE
  8. ACYCLOVIR. [Concomitant]
     Active Substance: ACYCLOVIR
  9. OXYCODONE [Concomitant]
     Active Substance: OXYCODONE
  10. MYCOPHENOLATE [Concomitant]
     Active Substance: MYCOPHENOLIC ACID

REACTIONS (2)
  - Impaired healing [None]
  - Wound dehiscence [None]

NARRATIVE: CASE EVENT DATE: 20141222
